FAERS Safety Report 13010127 (Version 3)
Quarter: 2018Q4

REPORT INFORMATION
  Report Type: Report from Study
  Country: US (occurrence: US)
  Receive Date: 20161208
  Receipt Date: 20181029
  Transmission Date: 20190204
  Serious: Yes (Hospitalization)
  Sender: FDA-Public Use
  Company Number: US-JNJFOC-20161111769

PATIENT
  Age: 57 Year
  Sex: Male

DRUGS (20)
  1. XANAX [Concomitant]
     Active Substance: ALPRAZOLAM
  2. IMBRUVICA [Suspect]
     Active Substance: IBRUTINIB
     Indication: MANTLE CELL LYMPHOMA
     Route: 048
     Dates: start: 20151215, end: 20161201
  3. PREDNISONE. [Concomitant]
     Active Substance: PREDNISONE
  4. PROMETHAZINE [Concomitant]
     Active Substance: PROMETHAZINE\PROMETHAZINE HYDROCHLORIDE
  5. THEOPHYLLINE [Concomitant]
     Active Substance: THEOPHYLLINE ANHYDROUS
  6. LISINOPRIL. [Concomitant]
     Active Substance: LISINOPRIL
  7. NAPROXEN. [Concomitant]
     Active Substance: NAPROXEN
  8. AMITRIPTYLINE HCL [Concomitant]
     Active Substance: AMITRIPTYLINE
  9. FENOFIBRATE. [Concomitant]
     Active Substance: FENOFIBRATE
  10. LORATADINE. [Concomitant]
     Active Substance: LORATADINE
  11. LEVAQUIN [Concomitant]
     Active Substance: LEVOFLOXACIN
  12. TIZANIDINE. [Concomitant]
     Active Substance: TIZANIDINE
  13. SYMBICORT [Concomitant]
     Active Substance: BUDESONIDE\FORMOTEROL FUMARATE DIHYDRATE
  14. OMEPRAZOLE. [Concomitant]
     Active Substance: OMEPRAZOLE
  15. TYLENOL [Concomitant]
     Active Substance: ACETAMINOPHEN
  16. ALBUTEROL. [Concomitant]
     Active Substance: ALBUTEROL
  17. IMBRUVICA [Suspect]
     Active Substance: IBRUTINIB
     Indication: MANTLE CELL LYMPHOMA
     Route: 048
     Dates: start: 20160126, end: 20180406
  18. SINGULAIR [Concomitant]
     Active Substance: MONTELUKAST SODIUM
  19. VENLAFAXINE [Concomitant]
     Active Substance: VENLAFAXINE HYDROCHLORIDE
  20. ABILIFY [Concomitant]
     Active Substance: ARIPIPRAZOLE

REACTIONS (4)
  - Pneumonia [Not Recovered/Not Resolved]
  - Chronic obstructive pulmonary disease [Unknown]
  - Lung disorder [Not Recovered/Not Resolved]
  - Dysphonia [Unknown]

NARRATIVE: CASE EVENT DATE: 20161101
